FAERS Safety Report 14803135 (Version 1)
Quarter: 2018Q2

REPORT INFORMATION
  Report Type: Spontaneous
  Country: US (occurrence: US)
  Receive Date: 20180425
  Receipt Date: 20180425
  Transmission Date: 20180711
  Serious: Yes (Other)
  Sender: FDA-Public Use
  Company Number: US-UCBSA-2018017257

PATIENT
  Age: 62 Year
  Sex: Female

DRUGS (1)
  1. VIMPAT [Suspect]
     Active Substance: LACOSAMIDE
     Indication: PRODUCT USED FOR UNKNOWN INDICATION
     Dosage: 100 MG, 2X/DAY (BID)

REACTIONS (4)
  - Fall [Unknown]
  - Drug dose omission [Unknown]
  - Generalised tonic-clonic seizure [Unknown]
  - Hand fracture [Unknown]

NARRATIVE: CASE EVENT DATE: 20171012
